FAERS Safety Report 9217946 (Version 2)
Quarter: 2013Q2

REPORT INFORMATION
  Report Type: Report from Study
  Country: US (occurrence: US)
  Receive Date: 20130408
  Receipt Date: 20130618
  Transmission Date: 20140414
  Serious: Yes (Hospitalization, Other)
  Sender: FDA-Public Use
  Company Number: US-ABBOTT-13P-163-1071334-00

PATIENT
  Age: 68 Year
  Sex: Female

DRUGS (13)
  1. HUMIRA [Suspect]
     Indication: RHEUMATOID ARTHRITIS
     Dates: start: 2010
  2. HUMIRA [Suspect]
  3. METOPROLOL [Concomitant]
     Indication: HYPERTENSION
  4. ATIVAN [Concomitant]
     Indication: ANXIETY
     Dosage: AT NIGHT
  5. METHOTREXATE [Concomitant]
     Indication: PRODUCT USED FOR UNKNOWN INDICATION
  6. METFORMIN [Concomitant]
     Indication: TYPE 2 DIABETES MELLITUS
  7. NEXIUM [Concomitant]
     Indication: GASTROOESOPHAGEAL REFLUX DISEASE
  8. DEXILANT [Concomitant]
     Indication: GASTROOESOPHAGEAL REFLUX DISEASE
  9. PLAQUENIL [Concomitant]
     Indication: PRODUCT USED FOR UNKNOWN INDICATION
  10. PROZAC [Concomitant]
  11. CRESTOR [Concomitant]
     Indication: PRODUCT USED FOR UNKNOWN INDICATION
     Dosage: 1 TABLET SUND, WED, AND FRI
  12. FISH OIL [Concomitant]
     Indication: PRODUCT USED FOR UNKNOWN INDICATION
  13. GARLIC CAPSULE [Concomitant]

REACTIONS (12)
  - Knee arthroplasty [Recovered/Resolved]
  - Oropharyngeal pain [Unknown]
  - Sinusitis [Unknown]
  - Rheumatoid arthritis [Unknown]
  - Decreased appetite [Unknown]
  - Weight decreased [Unknown]
  - Cholecystitis [Recovered/Resolved]
  - Anaemia [Recovering/Resolving]
  - Joint swelling [Unknown]
  - Oropharyngeal pain [Not Recovered/Not Resolved]
  - Conjunctivitis infective [Recovering/Resolving]
  - Nasopharyngitis [Unknown]
